FAERS Safety Report 6062355-4 (Version None)
Quarter: 2009Q1

REPORT INFORMATION
  Report Type: 
  Country: None (occurrence: None)
  Receive Date: 20090203
  Receipt Date: 20090121
  Transmission Date: 20090719
  Serious: Yes (Death, Hospitalization)
  Sender: FDA-Public Use
  Company Number: US-JNJFOC-20090107082

PATIENT
  Sex: Female
  Weight: 37.2 kg

DRUGS (8)
  1. DURAGESIC-100 [Suspect]
     Indication: PAIN
     Route: 065
  2. FLUOXETINE HCL [Concomitant]
  3. MORPHINE [Concomitant]
  4. CREATININE [Concomitant]
  5. DEXTROSE 5% [Concomitant]
  6. VUN [Concomitant]
  7. POTASSIUM CHLORIDE [Concomitant]
  8. SODIUM [Concomitant]

REACTIONS (5)
  - ARTERIOSCLEROSIS [None]
  - DEHYDRATION [None]
  - DRUG LEVEL INCREASED [None]
  - MITRAL VALVE STENOSIS [None]
  - PNEUMONIA [None]
